FAERS Safety Report 7502041-4 (Version None)
Quarter: 2011Q2

REPORT INFORMATION
  Report Type: 
  Country: None (occurrence: None)
  Receive Date: 20110523
  Receipt Date: 20110523
  Transmission Date: 20111010
  Serious: Yes (Other)
  Sender: FDA-Public Use
  Company Number: None

PATIENT
  Age: 25 Year
  Sex: Male
  Weight: 107.0489 kg

DRUGS (1)
  1. ALDARA [Suspect]
     Indication: ANOGENITAL WARTS
     Dosage: 3X/WEEK TOPICAL
     Route: 061
     Dates: start: 20100101, end: 20100301

REACTIONS (2)
  - PENIS DISORDER [None]
  - VITILIGO [None]
